FAERS Safety Report 23059823 (Version 4)
Quarter: 2023Q4

REPORT INFORMATION
  Report Type: Spontaneous
  Country: US (occurrence: US)
  Receive Date: 20231012
  Receipt Date: 20231020
  Transmission Date: 20240109
  Serious: Yes (Life-Threatening, Hospitalization, Other)
  Sender: FDA-Public Use
  Company Number: US-PFIZER INC-PV202300165920

PATIENT
  Age: 79 Year
  Sex: Female

DRUGS (2)
  1. PAXLOVID [Interacting]
     Active Substance: NIRMATRELVIR\RITONAVIR
     Indication: COVID-19 treatment
     Dosage: UNK
  2. RUXOLITINIB [Interacting]
     Active Substance: RUXOLITINIB
     Indication: Polycythaemia vera
     Dosage: UNK

REACTIONS (2)
  - Tumour lysis syndrome [Unknown]
  - Drug interaction [Unknown]
